FAERS Safety Report 5422139-4 (Version None)
Quarter: 2007Q3

REPORT INFORMATION
  Report Type: 
  Country: None (occurrence: None)
  Receive Date: 20070822
  Receipt Date: 20070816
  Transmission Date: 20080115
  Serious: Yes (Other)
  Sender: FDA-Public Use
  Company Number: CH-ASTRAZENECA-2007PK01742

PATIENT
  Sex: Female
  Weight: 3 kg

DRUGS (4)
  1. SEROQUEL [Suspect]
     Dates: start: 20050907, end: 20060523
  2. FLUVOXAMINE MALEATE [Suspect]
     Dates: start: 20050907, end: 20060531
  3. CLONAZEPAM [Suspect]
     Dates: start: 20050907, end: 20060531
  4. YASMIN [Suspect]
     Dates: end: 20051007

REACTIONS (2)
  - DRUG EXPOSURE DURING PREGNANCY [None]
  - NEONATAL RESPIRATORY DEPRESSION [None]
